FAERS Safety Report 7313194-5 (Version None)
Quarter: 2011Q1

REPORT INFORMATION
  Report Type: 
  Country: None (occurrence: None)
  Receive Date: 20110215
  Receipt Date: 20110215
  Transmission Date: 20110831
  Serious: Yes (Life-Threatening, Hospitalization)
  Sender: FDA-Public Use
  Company Number: None

PATIENT
  Age: 91 Year
  Sex: Female

DRUGS (1)
  1. PRADAXA [Suspect]

REACTIONS (10)
  - HAEMOGLOBIN DECREASED [None]
  - HAEMATOCRIT DECREASED [None]
  - WEIGHT DECREASED [None]
  - INTERNATIONAL NORMALISED RATIO INCREASED [None]
  - BLOOD CREATININE INCREASED [None]
  - ACTIVATED PARTIAL THROMBOPLASTIN TIME PROLONGED [None]
  - DYSPNOEA [None]
  - MEMORY IMPAIRMENT [None]
  - RECTAL HAEMORRHAGE [None]
  - DECREASED APPETITE [None]
